FAERS Safety Report 8090217-X (Version None)
Quarter: 2012Q1

REPORT INFORMATION
  Report Type: 
  Country: None (occurrence: None)
  Receive Date: 20120129
  Receipt Date: 20111116
  Transmission Date: 20120608
  Serious: No
  Sender: FDA-Public Use
  Company Number: US-ABBOTT-11P-163-0855757-00

PATIENT
  Age: 53 Year
  Sex: Male

DRUGS (6)
  1. HUMIRA [Suspect]
     Dates: start: 20110921
  2. UNKNOWN OTC ALLERGY MEDICATION [Concomitant]
     Indication: SEASONAL ALLERGY
  3. HUMIRA [Suspect]
     Indication: RHEUMATOID ARTHRITIS
     Dates: start: 20110907
  4. WELLBUTRIN [Concomitant]
     Indication: EX-TOBACCO USER
  5. NEXIUM [Concomitant]
     Indication: GASTROOESOPHAGEAL REFLUX DISEASE
  6. PREVACID [Concomitant]
     Indication: GASTROOESOPHAGEAL REFLUX DISEASE
     Dosage: OTC DAILY
     Route: 048

REACTIONS (6)
  - INJECTION SITE WARMTH [None]
  - INJECTION SITE PAPULE [None]
  - INJECTION SITE HAEMORRHAGE [None]
  - BRONCHITIS CHRONIC [None]
  - INJECTION SITE ERYTHEMA [None]
  - COUGH [None]
